FAERS Safety Report 21830722 (Version 1)
Quarter: 2023Q1

REPORT INFORMATION
  Report Type: Spontaneous
  Country: US (occurrence: None)
  Receive Date: 20230106
  Receipt Date: 20230106
  Transmission Date: 20230418
  Serious: No
  Sender: FDA-Public Use
  Company Number: None

PATIENT
  Age: 66 Year
  Sex: Female
  Weight: 53.61 kg

DRUGS (14)
  1. EVEROLIMUS [Suspect]
     Active Substance: EVEROLIMUS
     Indication: Breast cancer female
     Dosage: FREQUENCY : DAILY;?
     Route: 048
  2. ALPRAZOLAM [Concomitant]
     Active Substance: ALPRAZOLAM
  3. ASPIRIN [Concomitant]
     Active Substance: ASPIRIN
  4. CENTRUM ULTRA WOMENS [Concomitant]
  5. CLARITIN [Concomitant]
     Active Substance: LORATADINE
  6. EXEMESTANE [Concomitant]
     Active Substance: EXEMESTANE
  7. HYDROCORTISONE [Concomitant]
     Active Substance: HYDROCORTISONE
  8. LEVOTHYROXINE [Concomitant]
     Active Substance: LEVOTHYROXINE
  9. MESALAMINE [Concomitant]
     Active Substance: MESALAMINE
  10. ONDANSETRON [Concomitant]
     Active Substance: ONDANSETRON
  11. IRON [Concomitant]
     Active Substance: IRON
  12. SUMATRIPTAN [Concomitant]
     Active Substance: SUMATRIPTAN
  13. NAPROXEN [Concomitant]
     Active Substance: NAPROXEN
  14. TYLENOL [Concomitant]
     Active Substance: ACETAMINOPHEN

REACTIONS (1)
  - Disease progression [None]
